FAERS Safety Report 25088438 (Version 1)
Quarter: 2025Q1

REPORT INFORMATION
  Report Type: Spontaneous
  Country: US (occurrence: None)
  Receive Date: 20250317
  Receipt Date: 20250317
  Transmission Date: 20250409
  Serious: No
  Sender: FDA-CTU
  Company Number: None

PATIENT
  Sex: Male

DRUGS (1)
  1. HYRIMOZ [Suspect]
     Active Substance: ADALIMUMAB-ADAZ
     Indication: Sarcoidosis
     Dosage: 40MG EVERY 14 DAYS SQ?
     Route: 058
     Dates: start: 202403

REACTIONS (3)
  - Nonspecific reaction [None]
  - Sarcoidosis [None]
  - Condition aggravated [None]
